FAERS Safety Report 23827538 (Version 3)
Quarter: 2024Q2

REPORT INFORMATION
  Report Type: Spontaneous
  Country: IN (occurrence: IN)
  Receive Date: 20240507
  Receipt Date: 20240628
  Transmission Date: 20240716
  Serious: Yes (Other)
  Sender: FDA-Public Use
  Company Number: IN-002147023-NVSC2024IN092574

PATIENT
  Sex: Male

DRUGS (2)
  1. MYFORTIC [Suspect]
     Active Substance: MYCOPHENOLATE SODIUM
     Indication: Renal transplant
     Dosage: 360 MG, BID
     Route: 048
     Dates: start: 20240126
  2. TACROLIMUS [Suspect]
     Active Substance: TACROLIMUS
     Indication: Renal transplant
     Dosage: UNK; TACSANT 1.5 MG MORNING + TACSANT 2 MG NIGHT, BID
     Route: 048
     Dates: start: 20240126

REACTIONS (16)
  - Congenital cystic kidney disease [Unknown]
  - End stage renal disease [Unknown]
  - Urine output decreased [Unknown]
  - Acute kidney injury [Unknown]
  - Cardiac failure acute [Unknown]
  - Pneumonia klebsiella [Unknown]
  - Urosepsis [Unknown]
  - Adverse drug reaction [Unknown]
  - Vertigo [Unknown]
  - Cough [Unknown]
  - Asthenia [Unknown]
  - Left ventricular dysfunction [Unknown]
  - Abdominal pain upper [Unknown]
  - Pyrexia [Unknown]
  - Dysuria [Unknown]
  - Electrolyte imbalance [Unknown]
